FAERS Safety Report 25079397 (Version 1)
Quarter: 2025Q1

REPORT INFORMATION
  Report Type: Spontaneous
  Country: CA (occurrence: CA)
  Receive Date: 20250314
  Receipt Date: 20250314
  Transmission Date: 20250409
  Serious: Yes (Other)
  Sender: ANI
  Company Number: CA-ANIPHARMA-2025-CA-000913

PATIENT
  Age: 67 Year
  Sex: Male

DRUGS (11)
  1. BICALUTAMIDE [Suspect]
     Active Substance: BICALUTAMIDE
     Indication: Blood testosterone increased
  2. PANTOPRAZOLE [Concomitant]
     Active Substance: PANTOPRAZOLE
  3. PREDNISONE [Concomitant]
     Active Substance: PREDNISONE
  4. TELMISARTAN [Concomitant]
     Active Substance: TELMISARTAN
  5. ENTYVIO [Suspect]
     Active Substance: VEDOLIZUMAB
     Route: 042
  6. ASPIRIN [Concomitant]
     Active Substance: ASPIRIN
  7. ATORVASTATIN [Concomitant]
     Active Substance: ATORVASTATIN
  8. BISOPROLOL [Concomitant]
     Active Substance: BISOPROLOL
  9. HUMALOG [Concomitant]
     Active Substance: INSULIN LISPRO
  10. IRON [Concomitant]
     Active Substance: IRON
  11. LANTUS [Concomitant]
     Active Substance: INSULIN GLARGINE

REACTIONS (21)
  - Hypoaesthesia [Unknown]
  - Metastases to bone [Unknown]
  - Pollakiuria [Unknown]
  - Prostate cancer metastatic [Unknown]
  - Prostatic specific antigen increased [Unknown]
  - Secretion discharge [Unknown]
  - Urinary retention [Unknown]
  - Urinary tract infection [Unknown]
  - Urticaria [Unknown]
  - Vomiting [Unknown]
  - Constipation [Unknown]
  - Weight decreased [Unknown]
  - Product use in unapproved indication [Unknown]
  - Metastases to lung [Unknown]
  - Decreased appetite [Unknown]
  - Depression [Unknown]
  - Diarrhoea [Unknown]
  - Drug ineffective for unapproved indication [Unknown]
  - Dysuria [Unknown]
  - Faeces discoloured [Unknown]
  - Fatigue [Unknown]
